FAERS Safety Report 17438070 (Version 1)
Quarter: 2020Q1

REPORT INFORMATION
  Report Type: Spontaneous
  Country: US (occurrence: US)
  Receive Date: 20200220
  Receipt Date: 20200220
  Transmission Date: 20200409
  Serious: No
  Sender: FDA-Public Use
  Company Number: US-DRREDDYS-USA/USA/20/0119453

PATIENT
  Sex: Female

DRUGS (1)
  1. ZENATANE [Suspect]
     Active Substance: ISOTRETINOIN
     Indication: PRODUCT USED FOR UNKNOWN INDICATION
     Dosage: RMA DATES: 20 JANUARY 2014, 19 FEBRUARY 2014, 3 OCTOBER 2019, 4 DECEMBER 2019 AND 13 JANUARY 2020.
     Route: 065

REACTIONS (1)
  - Adverse drug reaction [Unknown]
